FAERS Safety Report 4354404-6 (Version None)
Quarter: 2004Q2

REPORT INFORMATION
  Report Type: 
  Country: None (occurrence: None)
  Receive Date: 20040503
  Receipt Date: 20040420
  Transmission Date: 20050107
  Serious: Yes (Hospitalization)
  Sender: FDA-Public Use
  Company Number: 2004UW08335

PATIENT
  Age: 64 Year
  Sex: Female

DRUGS (11)
  1. IRESSA [Suspect]
     Indication: NON-SMALL CELL LUNG CANCER
     Dosage: 250 MG DAILY PO
     Route: 048
     Dates: start: 20031210
  2. NORTRIPTYLINE HCL [Concomitant]
  3. MAXERAN [Concomitant]
  4. OMEPRAZOLE [Concomitant]
  5. SYNTHROID [Concomitant]
  6. LACTULOSE [Concomitant]
  7. COLACE [Concomitant]
  8. RADIATION [Concomitant]
  9. METHADONE HCL [Concomitant]
  10. FENTANYL [Concomitant]
  11. CLOMAZAPONE [Concomitant]

REACTIONS (1)
  - CHEST PAIN [None]
